FAERS Safety Report 6284010-8 (Version None)
Quarter: 2009Q3

REPORT INFORMATION
  Report Type: 
  Country: None (occurrence: None)
  Receive Date: 20090727
  Receipt Date: 20090720
  Transmission Date: 20100115
  Serious: Yes (Hospitalization)
  Sender: FDA-Public Use
  Company Number: US-BIOGENIDEC-2009BI021555

PATIENT
  Age: 37 Year
  Sex: Female

DRUGS (1)
  1. TYSABRI [Suspect]
     Indication: MULTIPLE SCLEROSIS
     Route: 042
     Dates: start: 20080916

REACTIONS (7)
  - BLADDER OPERATION [None]
  - MALAISE [None]
  - NASOPHARYNGITIS [None]
  - NEPHROLITHIASIS [None]
  - SINUSITIS [None]
  - UTERINE DISORDER [None]
  - WHITE BLOOD CELL COUNT INCREASED [None]
